FAERS Safety Report 12582238 (Version 1)
Quarter: 2016Q3

REPORT INFORMATION
  Report Type: Report from Study
  Country: US (occurrence: US)
  Receive Date: 20160722
  Receipt Date: 20160722
  Transmission Date: 20161109
  Serious: Yes (Hospitalization)
  Sender: FDA-Public Use
  Company Number: PHEH2016US018055

PATIENT
  Sex: Female

DRUGS (6)
  1. TOBI [Suspect]
     Active Substance: TOBRAMYCIN
     Indication: PSEUDOMONAS INFECTION
  2. TOBI [Suspect]
     Active Substance: TOBRAMYCIN
     Indication: PANCREATIC DISORDER
  3. TOBI [Suspect]
     Active Substance: TOBRAMYCIN
     Indication: GASTROINTESTINAL DISORDER
  4. TOBI [Suspect]
     Active Substance: TOBRAMYCIN
     Indication: CYSTIC FIBROSIS LUNG
     Route: 065
  5. TOBI [Suspect]
     Active Substance: TOBRAMYCIN
     Indication: CHRONIC SINUSITIS
  6. TOBI [Suspect]
     Active Substance: TOBRAMYCIN
     Indication: VITAMIN D DEFICIENCY

REACTIONS (2)
  - Cystic fibrosis [Unknown]
  - Condition aggravated [Unknown]
